FAERS Safety Report 15864768 (Version 4)
Quarter: 2019Q1

REPORT INFORMATION
  Report Type: Report from Study
  Country: US (occurrence: US)
  Receive Date: 20190124
  Receipt Date: 20190305
  Transmission Date: 20190417
  Serious: Yes (Hospitalization)
  Sender: FDA-Public Use
  Company Number: US-ACTELION-A-NJ2018-184308

PATIENT
  Age: 33 Year
  Sex: Female
  Weight: 76.64 kg

DRUGS (3)
  1. UPTRAVI [Suspect]
     Active Substance: SELEXIPAG
     Indication: PULMONARY ARTERIAL HYPERTENSION
     Dosage: 200 MCG, BID
     Route: 048
  2. VELETRI [Suspect]
     Active Substance: EPOPROSTENOL
     Indication: PULMONARY ARTERIAL HYPERTENSION
     Dosage: 14 NG/KG, PER MIN
     Route: 042
  3. VELETRI [Suspect]
     Active Substance: EPOPROSTENOL
     Dosage: 10 NG/KG, PER MIN
     Route: 042

REACTIONS (12)
  - Dyspnoea [Recovering/Resolving]
  - Disease progression [Unknown]
  - Pain [Unknown]
  - Chest discomfort [Unknown]
  - Nausea [Unknown]
  - Headache [Unknown]
  - Cardiogenic shock [Recovering/Resolving]
  - Chest pain [Unknown]
  - Peripheral swelling [Unknown]
  - Pulmonary hypertension [Unknown]
  - Pain in jaw [Unknown]
  - Bone pain [Unknown]

NARRATIVE: CASE EVENT DATE: 20190130
